FAERS Safety Report 6075756-5 (Version None)
Quarter: 2009Q1

REPORT INFORMATION
  Report Type: 
  Country: None (occurrence: None)
  Receive Date: 20090209
  Receipt Date: 20090203
  Transmission Date: 20090719
  Serious: Yes (Other)
  Sender: FDA-Public Use
  Company Number: 2009SP002535

PATIENT
  Sex: Male

DRUGS (1)
  1. INTERFERON (MANUFACTURER UNKNOWN) (INTERFERON ALFA-2B) [Suspect]
     Indication: DRUG USE FOR UNKNOWN INDICATION

REACTIONS (2)
  - NEPHROANGIOSCLEROSIS [None]
  - THROMBOTIC MICROANGIOPATHY [None]
